FAERS Safety Report 12290259 (Version 1)
Quarter: 2016Q2

REPORT INFORMATION
  Report Type: Spontaneous
  Country: US (occurrence: None)
  Receive Date: 20160420
  Receipt Date: 20160420
  Transmission Date: 20160815
  Serious: Yes (Life-Threatening)
  Sender: FDA-Public Use
  Company Number: None

PATIENT
  Age: 59 Year
  Sex: Female

DRUGS (1)
  1. ISOSULFAN BLUE, 1% [Suspect]
     Active Substance: ISOSULFAN BLUE
     Dates: start: 20160418

REACTIONS (3)
  - Procedural hypotension [None]
  - Anaphylactic reaction [None]
  - Hypoxia [None]

NARRATIVE: CASE EVENT DATE: 20160418
